FAERS Safety Report 5626622-8 (Version None)
Quarter: 2008Q1

REPORT INFORMATION
  Report Type: 
  Country: None (occurrence: None)
  Receive Date: 20080214
  Receipt Date: 20080204
  Transmission Date: 20080703
  Serious: Yes (Death, Life-Threatening)
  Sender: FDA-Public Use
  Company Number: SK-GENENTECH-250850

PATIENT
  Sex: Female

DRUGS (6)
  1. OMALIZUMAB [Suspect]
     Indication: ASTHMA
  2. ATROVENT [Concomitant]
     Indication: DRUG USE FOR UNKNOWN INDICATION
  3. SULBACTAM SODIUM [Concomitant]
     Indication: DRUG USE FOR UNKNOWN INDICATION
  4. SYMBICORT [Concomitant]
     Indication: DRUG USE FOR UNKNOWN INDICATION
  5. SYNTOPHYLLIN [Concomitant]
     Indication: DRUG USE FOR UNKNOWN INDICATION
  6. TAZOCIN [Concomitant]
     Indication: DRUG USE FOR UNKNOWN INDICATION

REACTIONS (2)
  - GASTRIC ULCER PERFORATION [None]
  - SEPSIS [None]
